FAERS Safety Report 9414083 (Version 2)
Quarter: 2013Q3

REPORT INFORMATION
  Report Type: Report from Study
  Country: US (occurrence: US)
  Receive Date: 20130723
  Receipt Date: 20130729
  Transmission Date: 20140515
  Serious: Yes (Death)
  Sender: FDA-Public Use
  Company Number: US-ROCHE-1251707

PATIENT
  Sex: Female

DRUGS (1)
  1. ACTIVASE [Suspect]
     Indication: CEREBROVASCULAR ACCIDENT
     Route: 065
     Dates: start: 20130722, end: 20130722

REACTIONS (1)
  - Death [Fatal]
